FAERS Safety Report 14768328 (Version 1)
Quarter: 2018Q2

REPORT INFORMATION
  Report Type: Spontaneous
  Country: FR (occurrence: FR)
  Receive Date: 20180417
  Receipt Date: 20180417
  Transmission Date: 20180711
  Serious: Yes (Other)
  Sender: FDA-Public Use
  Company Number: FR-MERCK KGAA-2045857

PATIENT
  Age: 40 Year
  Sex: Female

DRUGS (1)
  1. NOVOTHYROX [Suspect]
     Active Substance: LEVOTHYROXINE SODIUM
     Indication: HYPOTHYROIDISM
     Dates: start: 201705

REACTIONS (20)
  - Depression [None]
  - Muscle spasms [None]
  - Negative thoughts [None]
  - Alopecia [None]
  - Somnolence [None]
  - Fear [None]
  - Suicidal ideation [None]
  - Pain [None]
  - Irritability [None]
  - Apathy [None]
  - Nervousness [None]
  - Discomfort [None]
  - Amnesia [None]
  - Feeling cold [None]
  - Mood swings [None]
  - Asthenia [None]
  - Skin atrophy [None]
  - Fatigue [None]
  - Malaise [None]
  - Asocial behaviour [None]

NARRATIVE: CASE EVENT DATE: 201705
